FAERS Safety Report 13659747 (Version 1)
Quarter: 2017Q2

REPORT INFORMATION
  Report Type: Spontaneous
  Country: US (occurrence: US)
  Receive Date: 20170616
  Receipt Date: 20170616
  Transmission Date: 20170830
  Serious: No
  Sender: FDA-Public Use
  Company Number: US-ALLERGAN-1709297US

PATIENT
  Age: 18 Year
  Sex: Female
  Weight: 59.7 kg

DRUGS (2)
  1. LILETTA [Suspect]
     Active Substance: LEVONORGESTREL
     Dosage: 52 MG, SINGLE
     Route: 015
     Dates: start: 20170228, end: 20170228
  2. LILETTA [Suspect]
     Active Substance: LEVONORGESTREL
     Indication: CONTRACEPTION
     Dosage: 52 MG, SINGLE
     Route: 015
     Dates: start: 20170113, end: 20170113

REACTIONS (2)
  - Device expulsion [Unknown]
  - Discomfort [Unknown]

NARRATIVE: CASE EVENT DATE: 20170228
